FAERS Safety Report 4480970-6 (Version None)
Quarter: 2004Q4

REPORT INFORMATION
  Report Type: 
  Country: None (occurrence: None)
  Receive Date: 20041021
  Receipt Date: 20041011
  Transmission Date: 20050328
  Serious: Yes (Hospitalization)
  Sender: FDA-Public Use
  Company Number: FR-AMGEN-UK094869

PATIENT
  Age: 81 Year
  Sex: Female

DRUGS (3)
  1. NEULASTA [Suspect]
     Indication: CHEMOTHERAPY
     Route: 058
     Dates: start: 20040915, end: 20040915
  2. CARBOPLATIN [Suspect]
     Route: 042
     Dates: start: 20040913, end: 20040913
  3. TAXOL [Suspect]
     Route: 042
     Dates: start: 20040913, end: 20040913

REACTIONS (1)
  - LOCALISED SKIN REACTION [None]
